FAERS Safety Report 6924603-5 (Version None)
Quarter: 2010Q3

REPORT INFORMATION
  Report Type: 
  Country: None (occurrence: None)
  Receive Date: 20100813
  Receipt Date: 20100806
  Transmission Date: 20110219
  Serious: Yes (Other)
  Sender: FDA-Public Use
  Company Number: US-AMGEN-KDL425745

PATIENT
  Sex: Female

DRUGS (1)
  1. ENBREL [Suspect]
     Indication: RHEUMATOID ARTHRITIS
     Route: 058
     Dates: start: 20100709, end: 20100724

REACTIONS (11)
  - ARTHRALGIA [None]
  - COLD SWEAT [None]
  - DIZZINESS [None]
  - INJECTION SITE INDURATION [None]
  - INJECTION SITE INFLAMMATION [None]
  - INJECTION SITE PAIN [None]
  - INJECTION SITE RASH [None]
  - MEMORY IMPAIRMENT [None]
  - MUSCLE SPASMS [None]
  - PALPITATIONS [None]
  - VISION BLURRED [None]
